FAERS Safety Report 21667570 (Version 1)
Quarter: 2022Q4

REPORT INFORMATION
  Report Type: Spontaneous
  Country: CH (occurrence: CH)
  Receive Date: 20221201
  Receipt Date: 20221201
  Transmission Date: 20230113
  Serious: Yes (Life-Threatening, Hospitalization, Other)
  Sender: FDA-Public Use
  Company Number: None

PATIENT
  Age: 59 Year
  Sex: Male

DRUGS (4)
  1. LIBTAYO [Suspect]
     Active Substance: CEMIPLIMAB-RWLC
     Indication: Squamous cell carcinoma of skin
     Dosage: 350 MG, QCY
     Route: 042
     Dates: start: 20220720, end: 20220720
  2. LIBTAYO [Suspect]
     Active Substance: CEMIPLIMAB-RWLC
     Dosage: 350 MG, QCY
     Route: 042
     Dates: start: 20220809, end: 20220809
  3. LIBTAYO [Suspect]
     Active Substance: CEMIPLIMAB-RWLC
     Dosage: 350 MG, QCY
     Route: 042
     Dates: start: 20220831, end: 20220831
  4. PERINDOPRIL AMLODIPIN MEPHA [Concomitant]
     Indication: Hypertension
     Dosage: 1 DF, QD (10MG/ AMLODIPINE 10MG)
     Route: 048
     Dates: start: 20210831

REACTIONS (1)
  - Encephalitis [Not Recovered/Not Resolved]

NARRATIVE: CASE EVENT DATE: 20220902
